FAERS Safety Report 9149983 (Version 2)
Quarter: 2013Q1

REPORT INFORMATION
  Report Type: Spontaneous
  Country: CA (occurrence: None)
  Receive Date: 20130129
  Receipt Date: 20130220
  Transmission Date: 20140127
  Serious: Yes (Other)
  Sender: FDA-Public Use
  Company Number: 2013SGN00019

PATIENT
  Age: 32 Year
  Sex: Male

DRUGS (3)
  1. ADCETRIS (BRENTUXIMAB VEDOTIN) INJECTION [Suspect]
     Indication: PRODUCT USED FOR UNKNOWN INDICATION
     Dosage: Q21D
     Dates: start: 201211, end: 201211
  2. ADCETRIS (BRENTUXIMAB VEDOTIN) INJECTION [Suspect]
     Indication: HODGKIN^S DISEASE
     Dosage: Q21D
     Dates: start: 201211, end: 201211
  3. ADCETRIS (BRENTUXIMAB VEDOTIN) INJECTION [Suspect]
     Indication: NON-HODGKIN^S LYMPHOMA
     Dosage: Q21D
     Dates: start: 201211, end: 201211

REACTIONS (7)
  - Blindness [None]
  - Neuropathy peripheral [None]
  - Asthenia [None]
  - Vision blurred [None]
  - Photophobia [None]
  - Diplopia [None]
  - Impaired driving ability [None]
